FAERS Safety Report 8258027 (Version 3)
Quarter: 2012Q4

REPORT INFORMATION
  Report Type: 
  Country: GR (occurrence: GR)
  Receive Date: 20111121
  Receipt Date: 20121031
  Transmission Date: 20130627
  Serious: Yes (Other)
  Sender: FDA-Public Use
  Company Number: GR-AMGEN-GRCSP2011059210

PATIENT
  Sex: Female

DRUGS (3)
  1. PROLIA [Suspect]
     Indication: OSTEOPOROSIS POSTMENOPAUSAL
     Dosage: UNK UNK, q6mo
     Dates: start: 20110401
  2. PROLIA [Suspect]
     Dosage: 60 mg, UNK
     Dates: start: 201112
  3. ONEALPHA [Concomitant]
     Dosage: UNK
     Dates: start: 20110401

REACTIONS (2)
  - Retinal detachment [Recovered/Resolved]
  - Cholecystectomy [Unknown]
